FAERS Safety Report 18677505 (Version 1)
Quarter: 2020Q4

REPORT INFORMATION
  Report Type: Spontaneous
  Country: DE (occurrence: DE)
  Receive Date: 20201229
  Receipt Date: 20201229
  Transmission Date: 20210114
  Serious: Yes (Other)
  Sender: FDA-Public Use
  Company Number: DE-TORRENT-00019273

PATIENT
  Age: 34 Year
  Sex: Female
  Weight: 66 kg

DRUGS (5)
  1. SUBSTITOL RET [MORPHINE] . [Suspect]
     Active Substance: MORPHINE
     Indication: DRUG DEPENDENCE
     Dosage: 400 (MG/D)
     Route: 048
     Dates: start: 20190414, end: 20200108
  2. FOLIC ACID. [Concomitant]
     Active Substance: FOLIC ACID
     Indication: PROPHYLAXIS OF NEURAL TUBE DEFECT
     Dosage: UNKNOWN
     Route: 048
     Dates: start: 20190529, end: 20190619
  3. ESCITALOPRAM [Suspect]
     Active Substance: ESCITALOPRAM OXALATE
     Indication: DEPRESSION
     Dosage: 20 MG/D
     Route: 048
     Dates: start: 20190414, end: 20200108
  4. CETIRIZINE [Concomitant]
     Active Substance: CETIRIZINE HYDROCHLORIDE
     Indication: SEASONAL ALLERGY
     Dosage: IF REQUIRED
     Route: 048
     Dates: start: 20190414, end: 20190619
  5. MIRTAZAPINE. [Suspect]
     Active Substance: MIRTAZAPINE
     Indication: SLEEP DISORDER
     Dosage: 30 MG/D
     Route: 048
     Dates: start: 20190414, end: 20200108

REACTIONS (2)
  - Exposure during pregnancy [Unknown]
  - Gestational diabetes [Recovered/Resolved]

NARRATIVE: CASE EVENT DATE: 20190414
